FAERS Safety Report 9083285 (Version 1)
Quarter: 2013Q1

REPORT INFORMATION
  Report Type: Report from Study
  Country: US (occurrence: US)
  Receive Date: 20130130
  Receipt Date: 20130130
  Transmission Date: 20140127
  Serious: No
  Sender: FDA-Public Use
  Company Number: US-ABBOTT-12P-163-0925278-00

PATIENT
  Age: 30 Year
  Sex: Female
  Weight: 47.67 kg

DRUGS (6)
  1. HUMIRA 40 MG/0.8 ML PEN [Suspect]
     Indication: CROHN^S DISEASE
     Dates: start: 20120326, end: 201204
  2. TRAZODONE [Suspect]
     Indication: PRODUCT USED FOR UNKNOWN INDICATION
  3. MESALAMINE [Concomitant]
     Indication: CROHN^S DISEASE
  4. PENTASA [Concomitant]
     Indication: CROHN^S DISEASE
  5. UNKNOWN MEDICATION [Concomitant]
     Indication: EPILEPSY
  6. UNKNOWN MEDICATION [Concomitant]
     Indication: ASTHMA

REACTIONS (9)
  - Pruritus [Recovering/Resolving]
  - Rash [Recovering/Resolving]
  - Rash [Recovering/Resolving]
  - Rash [Recovering/Resolving]
  - Rash [Recovering/Resolving]
  - Rash erythematous [Recovering/Resolving]
  - Pain [Recovering/Resolving]
  - Rash erythematous [Recovering/Resolving]
  - Hypersensitivity [Recovered/Resolved]
